FAERS Safety Report 5279315-3 (Version None)
Quarter: 2007Q1

REPORT INFORMATION
  Report Type: 
  Country: None (occurrence: None)
  Receive Date: 20070328
  Receipt Date: 20060414
  Transmission Date: 20070707
  Serious: No
  Sender: FDA-Public Use
  Company Number: US-AMGEN-US175900

PATIENT
  Sex: Female

DRUGS (6)
  1. NEULASTA [Suspect]
     Indication: CHEMOTHERAPY
     Route: 058
     Dates: start: 20050915, end: 20060201
  2. CYTOXAN [Concomitant]
     Route: 065
  3. ADRIAMYCIN PFS [Concomitant]
     Route: 065
  4. METHOTREXATE [Concomitant]
     Route: 065
  5. VINCRISTINE [Concomitant]
     Route: 065
  6. CYTARABINE [Concomitant]
     Route: 065

REACTIONS (4)
  - ARTHRALGIA [None]
  - BONE PAIN [None]
  - INJECTION SITE NODULE [None]
  - INJECTION SITE PAIN [None]
